FAERS Safety Report 11483147 (Version 1)
Quarter: 2015Q3

REPORT INFORMATION
  Report Type: Spontaneous
  Country: US (occurrence: US)
  Receive Date: 20150903
  Receipt Date: 20150903
  Transmission Date: 20151125
  Serious: No
  Sender: FDA-Public Use
  Company Number: US-ELI_LILLY_AND_COMPANY-US201202004258

PATIENT
  Sex: Male
  Weight: 95.69 kg

DRUGS (7)
  1. ANDROGEL [Concomitant]
     Active Substance: TESTOSTERONE
  2. CYMBALTA [Suspect]
     Active Substance: DULOXETINE HYDROCHLORIDE
     Indication: NEUROPATHY PERIPHERAL
     Dosage: 60 MG, QD
     Route: 048
     Dates: start: 201006
  3. KEPPRA [Concomitant]
     Active Substance: LEVETIRACETAM
     Dosage: 500 MG, UNK
  4. CYMBALTA [Suspect]
     Active Substance: DULOXETINE HYDROCHLORIDE
     Dosage: 60 MG, QD
     Route: 048
  5. DEXEDRINE [Concomitant]
     Active Substance: DEXTROAMPHETAMINE SULFATE
     Dosage: 10 DF, UNK
  6. LIPITOR [Concomitant]
     Active Substance: ATORVASTATIN CALCIUM
     Dosage: 10 DF, UNKNOWN
  7. BROMOCRIPTINE [Concomitant]
     Active Substance: BROMOCRIPTINE

REACTIONS (5)
  - Cataplexy [Not Recovered/Not Resolved]
  - Neuralgia [Not Recovered/Not Resolved]
  - Somnolence [Unknown]
  - Drug effect decreased [Not Recovered/Not Resolved]
  - Fatigue [Unknown]
